FAERS Safety Report 4947767-1 (Version None)
Quarter: 2006Q1

REPORT INFORMATION
  Report Type: 
  Country: None (occurrence: None)
  Receive Date: 20060314
  Receipt Date: 20060301
  Transmission Date: 20060701
  Serious: Yes (Death, Life-Threatening)
  Sender: FDA-Public Use
  Company Number: HQWYE936223FEB06

PATIENT
  Age: 49 Year
  Sex: Female
  Weight: 83 kg

DRUGS (2)
  1. MYLOTARG [Suspect]
     Indication: ACUTE MYELOID LEUKAEMIA
     Dosage: 12.1 MG 1X PER 1 DAY, INTRAVENOUS; SEE IMAGE
     Route: 042
     Dates: start: 20060201, end: 20060201
  2. MYLOTARG [Suspect]
     Indication: ACUTE MYELOID LEUKAEMIA
     Dosage: 12.1 MG 1X PER 1 DAY, INTRAVENOUS; SEE IMAGE
     Route: 042
     Dates: start: 20060208, end: 20060208

REACTIONS (14)
  - ALANINE AMINOTRANSFERASE INCREASED [None]
  - BLOOD ALKALINE PHOSPHATASE INCREASED [None]
  - BLOOD CREATININE INCREASED [None]
  - CARDIOMYOPATHY [None]
  - ENTEROCOCCAL INFECTION [None]
  - HYPERBILIRUBINAEMIA [None]
  - HYPOXIA [None]
  - INFUSION RELATED REACTION [None]
  - INTRACARDIAC THROMBUS [None]
  - LUNG INFILTRATION [None]
  - PLEURAL EFFUSION [None]
  - SEPSIS [None]
  - TERMINAL STATE [None]
  - WEIGHT INCREASED [None]
